FAERS Safety Report 5345100-7 (Version None)
Quarter: 2007Q2

REPORT INFORMATION
  Report Type: 
  Country: None (occurrence: None)
  Receive Date: 20070601
  Receipt Date: 20070518
  Transmission Date: 20071010
  Serious: Yes (Hospitalization)
  Sender: FDA-Public Use
  Company Number: 155882ISR

PATIENT
  Age: 18 Year
  Sex: Male

DRUGS (3)
  1. CISPLATIN [Suspect]
     Indication: TESTIS CANCER
     Dosage: (20 MG/M2)
     Route: 041
  2. ETOPOSIDE [Suspect]
     Indication: TESTIS CANCER
     Dosage: 100 MG/M2 ( 100 MG/M2, 1 IN 1 D)
     Route: 041
  3. BLEOMYCIN [Suspect]
     Indication: TESTIS CANCER
     Dosage: 30 IU (30 IU, 1 IN 1 D) INTRAVENOUS (NOT OTHERWISE SPECIFIED)
     Route: 042

REACTIONS (3)
  - DEEP VEIN THROMBOSIS [None]
  - HAEMODIALYSIS [None]
  - RENAL FAILURE ACUTE [None]
